FAERS Safety Report 9524862 (Version 1)
Quarter: 2013Q3

REPORT INFORMATION
  Report Type: Spontaneous
  Country: US (occurrence: None)
  Receive Date: 20130912
  Receipt Date: 20130912
  Transmission Date: 20140515
  Serious: Yes (Life-Threatening)
  Sender: FDA-Public Use
  Company Number: None

PATIENT
  Age: 57 Year
  Sex: Female
  Weight: 57.61 kg

DRUGS (1)
  1. VALSARTAN AND HYDROCHLOROTHIAZIDE [Suspect]
     Indication: HYPERTENSION
     Dosage: 1 PILL ONCE DAILY TAKEN BY MOUTH
     Dates: start: 20130102, end: 20130310

REACTIONS (10)
  - Dizziness [None]
  - Dyspnoea [None]
  - Palpitations [None]
  - Nausea [None]
  - Headache [None]
  - Fatigue [None]
  - Blood pressure increased [None]
  - Therapeutic response unexpected with drug substitution [None]
  - Product substitution issue [None]
  - Drug ineffective [None]
